FAERS Safety Report 5280013-0 (Version None)
Quarter: 2007Q1

REPORT INFORMATION
  Report Type: 
  Country: None (occurrence: None)
  Receive Date: 20061229
  Receipt Date: 20060914
  Transmission Date: 20070707
  Serious: Yes (Other)
  Sender: FDA-Public Use
  Company Number: 2006UW02212

PATIENT
  Age: 73 Year
  Sex: Female

DRUGS (7)
  1. CRESTOR [Suspect]
     Dosage: 20 MG PO
     Route: 048
  2. CRESTOR [Suspect]
     Dosage: 15 MG PO
     Route: 048
  3. CRESTOR [Suspect]
     Dosage: 10 MG PO
     Route: 048
  4. ZETIA [Concomitant]
  5. MICARDIS [Concomitant]
  6. ASPIRIN [Concomitant]
  7. BETA BLOCKER [Concomitant]

REACTIONS (3)
  - BLOOD CREATININE INCREASED [None]
  - NEUROPATHY PERIPHERAL [None]
  - RENAL FAILURE [None]
